FAERS Safety Report 10882548 (Version 2)
Quarter: 2015Q2

REPORT INFORMATION
  Report Type: Spontaneous
  Country: US (occurrence: US)
  Receive Date: 20150303
  Receipt Date: 20150513
  Transmission Date: 20150821
  Serious: Yes (Hospitalization, Other)
  Sender: FDA-Public Use
  Company Number: US-PFIZER INC-2015073918

PATIENT
  Age: 50 Year
  Sex: Male

DRUGS (6)
  1. TESTOSTERONE CIPIONATE [Suspect]
     Active Substance: TESTOSTERONE
     Indication: FATIGUE
  2. DEPO-TESTOSTERONE [Suspect]
     Active Substance: TESTOSTERONE CYPIONATE
     Indication: BLOOD TESTOSTERONE DECREASED
     Dosage: UNK
     Dates: start: 201005, end: 201402
  3. TESTOSTERONE CIPIONATE [Suspect]
     Active Substance: TESTOSTERONE
     Indication: BLOOD TESTOSTERONE DECREASED
  4. DEPO-TESTOSTERONE [Suspect]
     Active Substance: TESTOSTERONE CYPIONATE
     Indication: FATIGUE
  5. TESTOSTERONE CIPIONATE [Suspect]
     Active Substance: TESTOSTERONE
     Indication: HORMONE REPLACEMENT THERAPY
     Dosage: UNK, MONTHLY
     Dates: start: 201003, end: 2012
  6. DEPO-TESTOSTERONE [Suspect]
     Active Substance: TESTOSTERONE CYPIONATE
     Indication: HORMONE REPLACEMENT THERAPY
     Dosage: UNK, MONTHLY
     Dates: start: 2012, end: 201402

REACTIONS (5)
  - Fatigue [Not Recovered/Not Resolved]
  - Hypertension [Unknown]
  - Acute myocardial infarction [Unknown]
  - Erectile dysfunction [Not Recovered/Not Resolved]
  - Cerebrovascular accident [Unknown]

NARRATIVE: CASE EVENT DATE: 20100310
